FAERS Safety Report 9221893 (Version 1)
Quarter: 2013Q2

REPORT INFORMATION
  Report Type: Report from Study
  Country: US (occurrence: US)
  Receive Date: 20130410
  Receipt Date: 20130410
  Transmission Date: 20140414
  Serious: Yes (Hospitalization)
  Sender: FDA-Public Use
  Company Number: US-JNJFOC-20121001938

PATIENT
  Age: 16 Year
  Sex: Male
  Weight: 53.1 kg

DRUGS (6)
  1. REMICADE [Suspect]
     Indication: CROHN^S DISEASE
     Route: 042
  2. 5-ASA [Concomitant]
     Route: 048
  3. PREDNISONE [Concomitant]
  4. AZATHIOPRINE [Concomitant]
  5. RIFAMPIN [Concomitant]
  6. URSODIOL [Concomitant]

REACTIONS (1)
  - Abdominal adhesions [Recovered/Resolved with Sequelae]
